FAERS Safety Report 9140852 (Version 1)
Quarter: 2013Q1

REPORT INFORMATION
  Report Type: Spontaneous
  Country: US (occurrence: None)
  Receive Date: 20130227
  Receipt Date: 20130227
  Transmission Date: 20140127
  Serious: Yes (Death, Other)
  Sender: FDA-Public Use
  Company Number: AUR-APL-2013-00614

PATIENT
  Age: 32 Year
  Sex: Female

DRUGS (1)
  1. ZOLPIDEM (ZOLPIDEM) [Suspect]
     Indication: PRODUCT USED FOR UNKNOWN INDICATION
     Dosage: ORAL
     Route: 048

REACTIONS (2)
  - Cardiac arrest [None]
  - Respiratory arrest [None]
